FAERS Safety Report 10915287 (Version 2)
Quarter: 2015Q3

REPORT INFORMATION
  Report Type: Spontaneous
  Country: IT (occurrence: IT)
  Receive Date: 20150316
  Receipt Date: 20150918
  Transmission Date: 20151125
  Serious: Yes (Other)
  Sender: FDA-Public Use
  Company Number: IT-AUROBINDO-AUR-APL-2015-02120

PATIENT
  Age: 19 Year
  Sex: Male

DRUGS (3)
  1. RISPERIDONE 2MG [Suspect]
     Active Substance: RISPERIDONE
     Indication: PSYCHOTIC DISORDER
     Dosage: 2 MG, DAILY
     Route: 048
     Dates: start: 20150303, end: 20150305
  2. FLUVOXAMINE MALEATE. [Concomitant]
     Active Substance: FLUVOXAMINE MALEATE
     Indication: PRODUCT USED FOR UNKNOWN INDICATION
     Dosage: 50 MG, UNK
     Route: 065
  3. FLUVOXAMINE MALEATE. [Concomitant]
     Active Substance: FLUVOXAMINE MALEATE
     Dosage: 50 MG

REACTIONS (3)
  - Vertigo [Recovering/Resolving]
  - Loss of consciousness [Recovering/Resolving]
  - Somnolence [Recovering/Resolving]

NARRATIVE: CASE EVENT DATE: 20150305
